FAERS Safety Report 9529001 (Version 2)
Quarter: 2013Q3

REPORT INFORMATION
  Report Type: Spontaneous
  Country: JP (occurrence: JP)
  Receive Date: 20130917
  Receipt Date: 20130926
  Transmission Date: 20140515
  Serious: Yes (Other)
  Sender: FDA-Public Use
  Company Number: JP-PFIZER INC-2013265485

PATIENT
  Age: 4 Decade
  Sex: Male

DRUGS (5)
  1. FOSPHENYTOIN SODIUM [Suspect]
     Indication: CONVULSION
     Dosage: UNK
  2. LIDOCAINE HCL [Suspect]
     Indication: CONVULSION
     Dosage: UNK
  3. PHENYTOIN [Suspect]
     Indication: CONVULSION
     Dosage: UNK
  4. VALPROATE SODIUM [Suspect]
     Indication: CONVULSION
     Dosage: UNK
  5. S-1 [Concomitant]
     Indication: RECTAL CANCER
     Dosage: 100 MG/ BODY
     Route: 048
     Dates: start: 201208

REACTIONS (1)
  - Pancytopenia [Recovered/Resolved]
